FAERS Safety Report 9253903 (Version 2)
Quarter: 2013Q2

REPORT INFORMATION
  Report Type: Spontaneous
  Country: ES (occurrence: None)
  Receive Date: 20130419
  Receipt Date: 20130426
  Transmission Date: 20140414
  Serious: Yes (Hospitalization)
  Sender: FDA-Public Use
  Company Number: 2013-1619

PATIENT
  Age: 18 Year
  Sex: Male

DRUGS (1)
  1. DYSPORT [Suspect]
     Indication: QUADRIPARESIS
     Dosage: 1000 UNITS (1000 UNITS, 1 IN 1 CYCLE (S), INTRAMUSCULAR
     Dates: start: 20130211, end: 20130211

REACTIONS (7)
  - Vomiting [None]
  - Impaired gastric emptying [None]
  - Aspartate aminotransferase increased [None]
  - Alanine aminotransferase increased [None]
  - Gamma-glutamyltransferase increased [None]
  - Blood sodium decreased [None]
  - Haemoglobin decreased [None]
